FAERS Safety Report 13240253 (Version 1)
Quarter: 2017Q1

REPORT INFORMATION
  Report Type: Spontaneous
  Country: US (occurrence: US)
  Receive Date: 20170216
  Receipt Date: 20170216
  Transmission Date: 20170428
  Serious: Yes (Other)
  Sender: FDA-Public Use
  Company Number: US-CELGENEUS-USA-2017024017

PATIENT
  Age: 54 Year
  Sex: Female

DRUGS (4)
  1. DARATUMUMAB [Suspect]
     Active Substance: DARATUMUMAB
     Indication: PLASMA CELL MYELOMA
     Route: 065
  2. LOVENOX [Concomitant]
     Active Substance: ENOXAPARIN SODIUM
     Indication: PULMONARY EMBOLISM
  3. REVLIMID [Suspect]
     Active Substance: LENALIDOMIDE
     Indication: PLASMA CELL MYELOMA
     Dosage: 25 MILLIGRAM
     Route: 048
     Dates: start: 20170111
  4. LOVENOX [Concomitant]
     Active Substance: ENOXAPARIN SODIUM
     Indication: DEEP VEIN THROMBOSIS
     Route: 065

REACTIONS (7)
  - Respiratory tract congestion [Unknown]
  - Dyspnoea [Unknown]
  - Viral infection [Unknown]
  - Oropharyngeal pain [Unknown]
  - Pyrexia [Unknown]
  - Wheezing [Unknown]
  - Cough [Unknown]

NARRATIVE: CASE EVENT DATE: 20170116
